FAERS Safety Report 7015198-9 (Version None)
Quarter: 2010Q3

REPORT INFORMATION
  Report Type: 
  Country: None (occurrence: None)
  Receive Date: 20100922
  Receipt Date: 20100915
  Transmission Date: 20110219
  Serious: Yes (Disabling)
  Sender: FDA-Public Use
  Company Number: TPA2010A05022

PATIENT
  Age: 62 Year
  Sex: Female

DRUGS (1)
  1. ACTOPLUS MET [Suspect]

REACTIONS (9)
  - ABDOMINAL PAIN LOWER [None]
  - BACK DISORDER [None]
  - FALL [None]
  - FATIGUE [None]
  - MUSCLE SPASMS [None]
  - OSTEOPENIA [None]
  - RIB FRACTURE [None]
  - STAPHYLOCOCCAL INFECTION [None]
  - SURGERY [None]
